FAERS Safety Report 6233777-3 (Version None)
Quarter: 2009Q2

REPORT INFORMATION
  Report Type: 
  Country: None (occurrence: None)
  Receive Date: 20090612
  Receipt Date: 20090612
  Transmission Date: 20091009
  Serious: No
  Sender: FDA-Public Use
  Company Number: None

PATIENT
  Age: 39 Year
  Sex: Female

DRUGS (2)
  1. REGLAN [Suspect]
     Indication: HYSTERECTOMY
     Dosage: 10MG X1 IV PUSH
     Route: 042
     Dates: start: 20090422, end: 20090422
  2. PROZAC [Concomitant]

REACTIONS (4)
  - DEPRESSED LEVEL OF CONSCIOUSNESS [None]
  - DYSTONIA [None]
  - EYE DISORDER [None]
  - TREMOR [None]
